FAERS Safety Report 8144499-6 (Version None)
Quarter: 2012Q1

REPORT INFORMATION
  Report Type: 
  Country: None (occurrence: None)
  Receive Date: 20120214
  Receipt Date: 20120202
  Transmission Date: 20120608
  Serious: Yes (Hospitalization)
  Sender: FDA-Public Use
  Company Number: 2012-000423

PATIENT
  Age: 84 Year
  Sex: Female

DRUGS (5)
  1. NAPROXEN (ALEVE) [Suspect]
     Indication: INTERVERTEBRAL DISC PROTRUSION
     Dosage: ORAL
     Route: 048
     Dates: end: 20120101
  2. NAPROXEN (ALEVE) [Suspect]
     Indication: ANALGESIC THERAPY
     Dosage: ORAL
     Route: 048
     Dates: end: 20120101
  3. ALL OTHER THERAPEUTIC PRODUCTS [Concomitant]
  4. ANTIHYPERTENSIVES [Concomitant]
  5. ACTONEL [Suspect]
     Indication: OSTEOPOROSIS
     Dosage: 150MG, ONCE A MONTH, ORAL
     Route: 048
     Dates: start: 20110101

REACTIONS (5)
  - REGURGITATION [None]
  - ANAEMIA [None]
  - OEDEMA [None]
  - GASTROOESOPHAGEAL REFLUX DISEASE [None]
  - GASTROINTESTINAL HAEMORRHAGE [None]
